FAERS Safety Report 9532135 (Version 1)
Quarter: 2013Q3

REPORT INFORMATION
  Report Type: Spontaneous
  Country: HU (occurrence: HU)
  Receive Date: 20130918
  Receipt Date: 20130918
  Transmission Date: 20140515
  Serious: Yes (Other)
  Sender: FDA-Public Use
  Company Number: HU-ELI_LILLY_AND_COMPANY-HU201309002323

PATIENT
  Age: 59 Year
  Sex: Male

DRUGS (1)
  1. ZYPADHERA [Suspect]
     Indication: SCHIZOPHRENIA, CATATONIC TYPE
     Dosage: 405 MG, UNK
     Dates: start: 2013

REACTIONS (3)
  - Illusion [Unknown]
  - Disorientation [Unknown]
  - Somnolence [Unknown]
